FAERS Safety Report 16615356 (Version 1)
Quarter: 2019Q3

REPORT INFORMATION
  Report Type: Spontaneous
  Country: IT (occurrence: IT)
  Receive Date: 20190723
  Receipt Date: 20190723
  Transmission Date: 20191004
  Serious: Yes (Other)
  Sender: FDA-Public Use
  Company Number: IT-JNJFOC-20190719434

PATIENT
  Age: 56 Year
  Sex: Female
  Weight: 92 kg

DRUGS (1)
  1. CAELYX [Suspect]
     Active Substance: DOXORUBICIN HYDROCHLORIDE
     Indication: OVARIAN NEOPLASM
     Route: 042
     Dates: start: 20190703, end: 20190703

REACTIONS (4)
  - Laryngeal dyspnoea [Recovered/Resolved]
  - Back pain [Recovered/Resolved]
  - Hot flush [Recovered/Resolved]
  - Rash [Recovered/Resolved]

NARRATIVE: CASE EVENT DATE: 20190703
